FAERS Safety Report 5014921-2 (Version None)
Quarter: 2006Q2

REPORT INFORMATION
  Report Type: 
  Country: None (occurrence: None)
  Receive Date: 20060531
  Receipt Date: 20060518
  Transmission Date: 20061013
  Serious: Yes (Death)
  Sender: FDA-Public Use
  Company Number: FR-ROCHE-448802

PATIENT
  Age: 78 Year
  Sex: Female

DRUGS (4)
  1. ROCEPHIN [Suspect]
     Dosage: FORM REPORTED AS INJECTABLE SOLUTION.
     Route: 042
     Dates: start: 20060213, end: 20060215
  2. OFLOCET [Suspect]
     Dosage: FORM REPORTED AS INJECTABLE SOLUTION AND STRENGHT AS 200 MG/40 ML.
     Route: 042
     Dates: start: 20060213, end: 20060214
  3. OFLOCET [Suspect]
     Route: 048
     Dates: start: 20060214, end: 20060215
  4. RISPERDAL [Suspect]
     Indication: DRUG USE FOR UNKNOWN INDICATION
     Route: 048
     Dates: start: 20060214, end: 20060215

REACTIONS (2)
  - CONVULSION [None]
  - DEATH [None]
